FAERS Safety Report 5158939-8 (Version None)
Quarter: 2006Q4

REPORT INFORMATION
  Report Type: 
  Country: None (occurrence: None)
  Receive Date: 20061128
  Receipt Date: 20060504
  Transmission Date: 20070319
  Serious: No
  Sender: FDA-Public Use
  Company Number: US-BRISTOL-MYERS SQUIBB COMPANY-13367461

PATIENT
  Sex: Female
  Weight: 103 kg

DRUGS (7)
  1. CAPOZIDE [Suspect]
  2. OMACOR [Interacting]
     Indication: HYPERTRIGLYCERIDAEMIA
     Dates: start: 20060301, end: 20060327
  3. CAPTOPRIL [Concomitant]
  4. LIPITOR [Concomitant]
  5. NAPROXEN [Concomitant]
  6. TRICOR [Concomitant]
  7. ZYLOPRIM [Concomitant]

REACTIONS (3)
  - ARTHRALGIA [None]
  - DRUG INTERACTION [None]
  - JOINT SWELLING [None]
